FAERS Safety Report 9677882 (Version 1)
Quarter: 2013Q4

REPORT INFORMATION
  Report Type: Spontaneous
  Country: US (occurrence: None)
  Receive Date: 20131107
  Receipt Date: 20131107
  Transmission Date: 20140711
  Serious: Yes (Hospitalization)
  Sender: FDA-Public Use
  Company Number: None

PATIENT
  Age: 86 Year
  Sex: Male

DRUGS (1)
  1. RENVELA [Suspect]
     Dosage: 800 MG TID WITH MEALS ORAL
     Route: 048
     Dates: start: 20130824

REACTIONS (2)
  - Pneumonia [None]
  - Transient ischaemic attack [None]
